FAERS Safety Report 8841664 (Version 1)
Quarter: 2012Q4

REPORT INFORMATION
  Report Type: 
  Country: DK (occurrence: CA)
  Receive Date: 20121015
  Receipt Date: 20121015
  Transmission Date: 20130627
  Serious: Yes (Life-Threatening)
  Sender: FDA-Public Use
  Company Number: CA-FRI-1000039397

PATIENT
  Age: 51 Year
  Sex: Female

DRUGS (4)
  1. ESCITALOPRAM [Suspect]
     Route: 048
  2. CALCIUM [Concomitant]
  3. OMEPRAZOLE [Concomitant]
  4. VITAMIN D [Concomitant]

REACTIONS (4)
  - Suicidal ideation [Recovered/Resolved]
  - Condition aggravated [Recovered/Resolved]
  - Panic attack [Recovered/Resolved]
  - Anxiety [Recovered/Resolved]
